FAERS Safety Report 6038191-1 (Version None)
Quarter: 2009Q1

REPORT INFORMATION
  Report Type: 
  Country: None (occurrence: None)
  Receive Date: 20090115
  Receipt Date: 20090105
  Transmission Date: 20090719
  Serious: Yes (Other)
  Sender: FDA-Public Use
  Company Number: PHBS2007BR07340

PATIENT
  Age: 57 Year
  Sex: Female
  Weight: 84 kg

DRUGS (9)
  1. COMBIPATCH [Suspect]
     Indication: MENOPAUSE
     Dosage: 1 ADHESIVE EVERY 3-4 DAYS
     Route: 062
     Dates: start: 20030101
  2. COMBIPATCH [Suspect]
     Dosage: UNK
     Dates: start: 20081111
  3. TACROLIMUS [Concomitant]
     Indication: LIVER TRANSPLANT
     Dosage: HALF TAB MORNING AND AFTERNOON
     Route: 048
     Dates: start: 20011001
  4. LAMIVUDINE [Concomitant]
     Indication: HEPATITIS B
     Dosage: 10 ML/DAY
     Route: 048
     Dates: start: 20011001
  5. LAMIVUDINE [Concomitant]
     Indication: HEPATITIS C
  6. LUFTAL [Concomitant]
     Indication: FLATULENCE
     Dosage: 2 TAB/DAY
     Route: 048
     Dates: start: 20011001
  7. OMEPRAZOLE [Concomitant]
     Indication: ABDOMINAL DISCOMFORT
     Dosage: 1 TABLET DAILY
     Route: 048
     Dates: start: 20011001
  8. ISOFLAVONES [Concomitant]
     Dosage: 75MG, 1 TABLET A DAY.
  9. CALCIUM CARBONATE W/COLECALCIFEROL [Concomitant]
     Dosage: 1 TABLET A DAY
     Route: 065

REACTIONS (9)
  - BIOPSY BREAST [None]
  - BREAST MASS [None]
  - DYSPNOEA [None]
  - EMOTIONAL DISORDER [None]
  - FEELING HOT [None]
  - HOT FLUSH [None]
  - INSOMNIA [None]
  - MENOPAUSAL SYMPTOMS [None]
  - OSTEOPENIA [None]
